FAERS Safety Report 5412108-2 (Version None)
Quarter: 2007Q3

REPORT INFORMATION
  Report Type: 
  Country: None (occurrence: None)
  Receive Date: 20070813
  Receipt Date: 20070806
  Transmission Date: 20080115
  Serious: Yes (Hospitalization)
  Sender: FDA-Public Use
  Company Number: FR-AVENTIS-200713739EU

PATIENT
  Age: 87 Year
  Sex: Female

DRUGS (11)
  1. ENOXAPARIN SODIUM [Suspect]
     Route: 058
     Dates: start: 20070627, end: 20070701
  2. WARFARIN SODIUM [Suspect]
     Route: 048
     Dates: start: 20070628, end: 20070720
  3. PYOSTACINE [Concomitant]
     Route: 048
     Dates: start: 20070627
  4. TRIFLUCAN [Concomitant]
     Indication: PULMONARY EMBOLISM
     Route: 048
     Dates: start: 20070627, end: 20070711
  5. INIPOMP                            /01263201/ [Concomitant]
     Indication: REGURGITATION
     Route: 048
     Dates: start: 20070627
  6. LEXOMIL [Concomitant]
     Indication: ANXIETY
     Route: 048
  7. LEVOTHYROXINE SODIUM [Concomitant]
     Indication: HYPOTHYROIDISM
     Route: 048
  8. MOTILIUM [Concomitant]
     Indication: NAUSEA
     Route: 048
     Dates: start: 20070627
  9. DI-ANTALVIC                        /00220901/ [Concomitant]
     Route: 048
     Dates: start: 20070629, end: 20070715
  10. DOLIPRANE [Concomitant]
     Route: 048
     Dates: start: 20070630, end: 20070716
  11. MOVICOL                            /01053601/ [Concomitant]
     Indication: CONSTIPATION
     Route: 048
     Dates: start: 20070702

REACTIONS (1)
  - PAIN IN EXTREMITY [None]
